FAERS Safety Report 9069024 (Version 1)
Quarter: 2013Q1

REPORT INFORMATION
  Report Type: Spontaneous
  Country: MX (occurrence: MX)
  Receive Date: 20130128
  Receipt Date: 20130128
  Transmission Date: 20140127
  Serious: Yes (Hospitalization)
  Sender: FDA-Public Use
  Company Number: PHHY2013MX006574

PATIENT
  Sex: Male

DRUGS (7)
  1. RASILEZ [Suspect]
     Dates: start: 201101
  2. EXFORGE [Suspect]
     Indication: HYPERTENSION
     Dosage: 1 DF(160 MG VALS/10 MG AMLO), DAILY
     Route: 048
     Dates: start: 200901
  3. PREDNISONE [Concomitant]
     Dosage: 2 UKN, DAILY
     Dates: start: 200303
  4. DILATREND [Concomitant]
     Dosage: 1 UKN, DAILY
     Dates: start: 201212
  5. MINIPRESS [Concomitant]
     Dosage: 1 UKN, DAILY
     Dates: start: 201212
  6. ENALAPRIL [Concomitant]
     Dosage: 2 UKN, DAILY
     Dates: start: 200301
  7. TACROLIMUS [Concomitant]
     Dosage: 2 UKN, DAILY
     Dates: start: 201101

REACTIONS (4)
  - Cerebrovascular accident [Not Recovered/Not Resolved]
  - Diplopia [Not Recovered/Not Resolved]
  - Dizziness [Not Recovered/Not Resolved]
  - Feeling cold [Not Recovered/Not Resolved]
